FAERS Safety Report 7356286-7 (Version None)
Quarter: 2011Q1

REPORT INFORMATION
  Report Type: 
  Country: None (occurrence: None)
  Receive Date: 20110316
  Receipt Date: 20110121
  Transmission Date: 20110831
  Serious: Yes (Hospitalization)
  Sender: FDA-Public Use
  Company Number: US-BAYER-2011-022990

PATIENT
  Sex: Female
  Weight: 100 kg

DRUGS (6)
  1. HYDROCHLOROTHIAZIDE [Concomitant]
  2. YASMIN [Suspect]
     Indication: PREMENSTRUAL SYNDROME
  3. WELLBUTRIN [Concomitant]
  4. POTASSIUM [Concomitant]
  5. YASMIN [Suspect]
     Indication: CONTRACEPTION
     Dosage: UNK
     Dates: start: 20060501, end: 20060701
  6. YASMIN [Suspect]

REACTIONS (4)
  - URTICARIA [None]
  - PULMONARY EMBOLISM [None]
  - TOXICITY TO VARIOUS AGENTS [None]
  - VARICOSE VEIN [None]
